FAERS Safety Report 8217490-9 (Version None)
Quarter: 2012Q1

REPORT INFORMATION
  Report Type: 
  Country: None (occurrence: None)
  Receive Date: 20120315
  Receipt Date: 20120229
  Transmission Date: 20120608
  Serious: Yes (Death, Life-Threatening, Hospitalization, Other)
  Sender: FDA-Public Use
  Company Number: 2012SGN00033

PATIENT
  Age: 38 Year
  Sex: Male
  Weight: 62.6 kg

DRUGS (5)
  1. ADCETRIS [Suspect]
     Indication: HODGKIN'S DISEASE
     Dosage: 62 MG, Q21D, INTRAVENOUS
     Route: 042
     Dates: start: 20110701, end: 20111031
  2. LEVAQUIN [Concomitant]
  3. SEPTRA DS [Concomitant]
  4. CLINDA (CLINDAMYCIN PHOSPHATE) [Concomitant]
  5. NEULASTA (PEGFIGRASTIM) [Concomitant]

REACTIONS (2)
  - NEUROPATHY PERIPHERAL [None]
  - RESPIRATORY FAILURE [None]
